FAERS Safety Report 8421470-8 (Version None)
Quarter: 2012Q2

REPORT INFORMATION
  Report Type: 
  Country: None (occurrence: None)
  Receive Date: 20120608
  Receipt Date: 20120607
  Transmission Date: 20120825
  Serious: Yes (Death)
  Sender: FDA-Public Use
  Company Number: PHHY2012TH048541

PATIENT
  Age: 30 Year
  Sex: Male

DRUGS (2)
  1. ZOMETA [Suspect]
     Indication: GASTROINTESTINAL CARCINOMA
     Dosage: 4 MG, QMO
  2. ZOMETA [Suspect]
     Indication: METASTASES TO BONE

REACTIONS (1)
  - LUNG INFECTION [None]
